FAERS Safety Report 12484084 (Version 1)
Quarter: 2016Q2

REPORT INFORMATION
  Report Type: Spontaneous
  Country: US (occurrence: US)
  Receive Date: 20160621
  Receipt Date: 20160621
  Transmission Date: 20160815
  Serious: No
  Sender: FDA-Public Use
  Company Number: US-WATSON-2016-00369

PATIENT
  Sex: Female

DRUGS (1)
  1. TRANDOLAPRIL (WATSON LABORATORIES) [Suspect]
     Active Substance: TRANDOLAPRIL
     Indication: PRODUCT USED FOR UNKNOWN INDICATION
     Dosage: UNKNOWN
     Route: 065

REACTIONS (2)
  - Supraventricular extrasystoles [Unknown]
  - Palpitations [Unknown]
